FAERS Safety Report 5315303-6 (Version None)
Quarter: 2007Q2

REPORT INFORMATION
  Report Type: 
  Country: None (occurrence: None)
  Receive Date: 20070427
  Receipt Date: 20070413
  Transmission Date: 20071010
  Serious: Yes (Hospitalization, Other)
  Sender: FDA-Public Use
  Company Number: 163-20785-07040820

PATIENT
  Age: 56 Year
  Sex: Male

DRUGS (9)
  1. THALOMID [Suspect]
     Indication: MULTIPLE MYELOMA
     Dosage: 1600 MG QHS ORAL ; ORAL ; QHS ORAL
     Route: 048
     Dates: start: 20021201
  2. THALOMID [Suspect]
     Indication: MULTIPLE MYELOMA
     Dosage: 1600 MG QHS ORAL ; ORAL ; QHS ORAL
     Route: 048
     Dates: start: 20070101
  3. THALOMID [Suspect]
     Indication: MULTIPLE MYELOMA
     Dosage: 1600 MG QHS ORAL ; ORAL ; QHS ORAL
     Route: 048
     Dates: start: 20070301
  4. DEXAMETHASONE TAB [Suspect]
     Indication: MULTIPLE MYELOMA
     Dosage: 200 MG DAY 1 ORAL ; 20 MG, DAYS 4, 8, AND 11, ORAL
     Route: 048
     Dates: start: 20020101
  5. VELCADE [Concomitant]
  6. CISPLATIN [Concomitant]
  7. ADRIAMYCIN PFS [Concomitant]
  8. CYCLOPHOSPHAMIDE [Concomitant]
  9. ETOPOSIDE [Concomitant]

REACTIONS (11)
  - ASPIRATION BONE MARROW ABNORMAL [None]
  - ASTHENIA [None]
  - DIARRHOEA [None]
  - DISEASE PROGRESSION [None]
  - NAUSEA [None]
  - ORAL NEOPLASM [None]
  - PANCYTOPENIA [None]
  - PARAESTHESIA [None]
  - PLASMACYTOMA [None]
  - RESPIRATORY FAILURE [None]
  - VOMITING [None]
